FAERS Safety Report 5880763-9 (Version None)
Quarter: 2008Q3

REPORT INFORMATION
  Report Type: 
  Country: None (occurrence: None)
  Receive Date: 20080912
  Receipt Date: 20080602
  Transmission Date: 20090109
  Serious: No
  Sender: FDA-Public Use
  Company Number: US-ABBOTT-08P-163-0456049-00

PATIENT
  Sex: Female
  Weight: 70.37 kg

DRUGS (9)
  1. HUMIRA [Suspect]
     Indication: CROHN'S DISEASE
     Route: 050
     Dates: start: 20080516
  2. AZATHIOPRINE [Concomitant]
     Indication: CROHN'S DISEASE
     Route: 048
     Dates: start: 19960101
  3. FENTANYL [Concomitant]
     Indication: PAIN
     Route: 061
     Dates: start: 20080530
  4. PREGABALIN [Concomitant]
     Indication: PAIN
     Route: 048
     Dates: start: 20030101
  5. PREGABALIN [Concomitant]
     Indication: FIBROMYALGIA
  6. BUSPIRONE HYDROCHLORIDE [Concomitant]
     Indication: ANXIETY
     Dosage: 5 MG TABLETS 1.5 TABLETS TWICE DAILY
     Route: 048
     Dates: start: 20050101
  7. PHENERGAN HCL [Concomitant]
     Indication: NAUSEA
     Route: 048
  8. OXYCODONE HCL [Concomitant]
     Indication: PAIN
     Route: 048
     Dates: start: 20080407
  9. CALCIUM [Concomitant]
     Indication: MINERAL SUPPLEMENTATION
     Route: 048

REACTIONS (6)
  - COUGH [None]
  - EAR PAIN [None]
  - HEADACHE [None]
  - LARYNGITIS [None]
  - RESPIRATORY TRACT INFECTION [None]
  - TOOTHACHE [None]
